FAERS Safety Report 19239618 (Version 2)
Quarter: 2021Q2

REPORT INFORMATION
  Report Type: Report from Study
  Country: CA (occurrence: CA)
  Receive Date: 20210510
  Receipt Date: 20210526
  Transmission Date: 20210717
  Serious: Yes (Other)
  Sender: FDA-Public Use
  Company Number: CA-NALPROPION PHARMACEUTICALS INC.-2021-012381

PATIENT

DRUGS (5)
  1. CONTRAVE [Suspect]
     Active Substance: BUPROPION HYDROCHLORIDE\NALTREXONE HYDROCHLORIDE
     Dosage: 90MG/8MG, 1 TABLET IN MORNING, 1 TABLET IN THE EVENING
     Route: 048
     Dates: start: 202009, end: 202009
  2. CONTRAVE [Suspect]
     Active Substance: BUPROPION HYDROCHLORIDE\NALTREXONE HYDROCHLORIDE
     Dosage: 90MG/8MG, 2 TABLET IN MORNING, 1 TABLET IN THE EVENING
     Route: 048
     Dates: start: 202009, end: 202010
  3. CONTRAVE [Suspect]
     Active Substance: BUPROPION HYDROCHLORIDE\NALTREXONE HYDROCHLORIDE
     Dosage: 90MG/8MG
     Route: 048
     Dates: start: 20210427, end: 20210428
  4. CONTRAVE [Suspect]
     Active Substance: BUPROPION HYDROCHLORIDE\NALTREXONE HYDROCHLORIDE
     Indication: WEIGHT CONTROL
     Dosage: 90MG/8MG, 1 TABLET IN MORNING
     Route: 048
     Dates: start: 202009, end: 202009
  5. CONTRAVE [Suspect]
     Active Substance: BUPROPION HYDROCHLORIDE\NALTREXONE HYDROCHLORIDE
     Dosage: 90MG/8MG, 2 TABLET IN MORNING, 2 TABLET IN THE EVENING, (5/OCT/2020 APPROX.)
     Route: 048
     Dates: start: 202010, end: 20210426

REACTIONS (6)
  - Hunger [Unknown]
  - Therapy cessation [Unknown]
  - Hypertension [Recovering/Resolving]
  - Intentional product use issue [Unknown]
  - Constipation [Recovering/Resolving]
  - Arthropathy [Unknown]

NARRATIVE: CASE EVENT DATE: 2020
